FAERS Safety Report 19360607 (Version 1)
Quarter: 2021Q2

REPORT INFORMATION
  Report Type: Report from Study
  Country: None (occurrence: US)
  Receive Date: 20210602
  Receipt Date: 20210602
  Transmission Date: 20210717
  Serious: No
  Sender: FDA-Public Use
  Company Number: US-MDD US OPERATIONS-MDD202011-002213

PATIENT
  Age: 73 Year
  Sex: Female

DRUGS (1)
  1. APOKYN [Suspect]
     Active Substance: APOMORPHINE HYDROCHLORIDE
     Indication: PRODUCT USED FOR UNKNOWN INDICATION
     Dosage: NOT PROVIDED

REACTIONS (7)
  - On and off phenomenon [Unknown]
  - Condition aggravated [Unknown]
  - Therapy non-responder [Unknown]
  - Myalgia [Unknown]
  - Mastication disorder [Unknown]
  - Insomnia [Unknown]
  - Dysphagia [Unknown]
